FAERS Safety Report 17293761 (Version 1)
Quarter: 2020Q1

REPORT INFORMATION
  Report Type: Spontaneous
  Country: US (occurrence: US)
  Receive Date: 20200121
  Receipt Date: 20200121
  Transmission Date: 20200409
  Serious: No
  Sender: FDA-Public Use
  Company Number: US-SA-2020SA011827

PATIENT
  Age: 52 Year
  Sex: Male

DRUGS (4)
  1. PLAVIX [Suspect]
     Active Substance: CLOPIDOGREL BISULFATE
     Indication: ANTICOAGULANT THERAPY
     Dosage: 75 MG, QD
     Route: 065
  2. ALPRAZOLAM. [Suspect]
     Active Substance: ALPRAZOLAM
     Indication: ANXIETY
     Dosage: 1 MG, TID
     Route: 048
  3. FLONASE [Concomitant]
     Active Substance: FLUTICASONE PROPIONATE
     Dosage: 2 SPRAYS IN EACH NOSTRIL; 50 MCG PER SPRAY NASAL SPRAYS
  4. MELATONIN [Suspect]
     Active Substance: MELATONIN
     Indication: SOMNOLENCE
     Dosage: 5 MG, HS
     Route: 065

REACTIONS (5)
  - Treatment noncompliance [Unknown]
  - Product dose omission [Unknown]
  - Product use issue [Unknown]
  - Drug ineffective [Unknown]
  - Extra dose administered [Unknown]
